FAERS Safety Report 9416091 (Version 2)
Quarter: 2013Q3

REPORT INFORMATION
  Report Type: Report from Study
  Country: US (occurrence: US)
  Receive Date: 20130724
  Receipt Date: 20130815
  Transmission Date: 20140515
  Serious: Yes (Life-Threatening)
  Sender: FDA-Public Use
  Company Number: US-ROCHE-1243348

PATIENT
  Age: 57 Year
  Sex: Male
  Weight: 91 kg

DRUGS (8)
  1. BI 201335 [Suspect]
     Indication: CHRONIC HEPATITIS C
     Route: 065
     Dates: start: 20120706, end: 20121218
  2. RIBAVIRIN [Concomitant]
     Indication: CHRONIC HEPATITIS C
     Route: 048
     Dates: start: 20120706, end: 20130606
  3. PEG-INTERFERON ALFA 2A [Concomitant]
     Indication: CHRONIC HEPATITIS C
     Route: 058
     Dates: start: 20120706, end: 20130531
  4. IBUPROFEN [Concomitant]
     Indication: NECK PAIN
     Route: 048
     Dates: start: 20130429
  5. LISINOPRIL [Concomitant]
     Indication: HYPERTENSION
     Route: 048
     Dates: start: 20120101
  6. HCTZ [Concomitant]
     Indication: HYPERTENSION
     Route: 048
     Dates: start: 20120101
  7. SOMA (CARISOPRODOL) [Concomitant]
     Indication: PAIN
     Route: 048
     Dates: start: 20120719
  8. XANAX [Concomitant]
     Indication: ANXIETY
     Route: 048
     Dates: start: 20130429

REACTIONS (1)
  - Haemorrhage intracranial [Not Recovered/Not Resolved]
